FAERS Safety Report 9131968 (Version 1)
Quarter: 2013Q1

REPORT INFORMATION
  Report Type: Report from Study
  Country: US (occurrence: US)
  Receive Date: 20130301
  Receipt Date: 20130301
  Transmission Date: 20140127
  Serious: No
  Sender: FDA-Public Use
  Company Number: US-MYLANLABS-2012S1024175

PATIENT
  Age: 35 Year
  Sex: Female

DRUGS (5)
  1. AMNESTEEM CAPSULES [Suspect]
     Indication: ACNE
     Route: 048
     Dates: start: 20120731
  2. AMNESTEEM CAPSULES [Suspect]
     Indication: ACNE
     Route: 048
     Dates: end: 20121023
  3. COZAAR [Concomitant]
  4. MICROGESTIN [Concomitant]
     Dosage: PRESCRIBED BY OUTSIDE PROVIDER AND STARTED PRIOR TO AMNESTEEM TREATMENT.
  5. FISH OIL [Concomitant]
     Dates: start: 20120619

REACTIONS (3)
  - Headache [Recovered/Resolved]
  - Arthralgia [Recovering/Resolving]
  - Blood triglycerides increased [Not Recovered/Not Resolved]
